FAERS Safety Report 5762636-5 (Version None)
Quarter: 2008Q2

REPORT INFORMATION
  Report Type: 
  Country: None (occurrence: None)
  Receive Date: 20080609
  Receipt Date: 20080529
  Transmission Date: 20081010
  Serious: Yes (Death, Other)
  Sender: FDA-Public Use
  Company Number: US-ROCHE-567610

PATIENT
  Age: 47 Year

DRUGS (6)
  1. DIAZEPAM [Suspect]
     Indication: DRUG USE FOR UNKNOWN INDICATION
     Dosage: ROUTE REPORTED AS DERMAL AND/OR INGESTION.
     Route: 065
  2. ACETAMINOPHEN W/ PROPOXYPHENE HCL [Suspect]
     Indication: DRUG USE FOR UNKNOWN INDICATION
     Dosage: ROUTE REPORTED AS DERMAL AND/OR INGESTION.
     Route: 065
  3. ACETAMINOPHEN W/ PROPOXYPHENE HCL [Suspect]
     Dosage: ROUTE REPORTED AS DERMAL AND/OR INGESTION.
     Route: 065
  4. HYDROCODONE BITARTRATE + ACETAMINOPHEN [Suspect]
     Indication: DRUG USE FOR UNKNOWN INDICATION
     Dosage: ROUTE REPORTED AS DERMAL AND/OR INGESTION.
     Route: 065
  5. HYDROCODONE BITARTRATE + ACETAMINOPHEN [Suspect]
     Dosage: ROUTE REPORTED AS DERMAL AND/OR INGESTION.
     Route: 065
  6. UNSPECIFIED DRUGS [Suspect]
     Indication: DRUG USE FOR UNKNOWN INDICATION
     Route: 065

REACTIONS (4)
  - CARDIAC ARREST [None]
  - DEATH [None]
  - MEDICATION ERROR [None]
  - RESPIRATORY ARREST [None]
